FAERS Safety Report 16847269 (Version 5)
Quarter: 2019Q4

REPORT INFORMATION
  Report Type: Report from Study
  Country: US (occurrence: US)
  Receive Date: 20190924
  Receipt Date: 20191119
  Transmission Date: 20200122
  Serious: Yes (Hospitalization, Other)
  Sender: FDA-Public Use
  Company Number: US-ACTELION-A-NJ2019-194232

PATIENT
  Sex: Female
  Weight: 74.83 kg

DRUGS (8)
  1. ADCIRCA [Concomitant]
     Active Substance: TADALAFIL
     Indication: PULMONARY HYPERTENSION
     Dosage: UNK
  2. OPSUMIT [Suspect]
     Active Substance: MACITENTAN
     Indication: PULMONARY ARTERIAL HYPERTENSION
     Dosage: 10 MG, QD
     Route: 048
  3. UPTRAVI [Suspect]
     Active Substance: SELEXIPAG
     Indication: PULMONARY ARTERIAL HYPERTENSION
     Dosage: 200 MCG, BID
     Route: 048
  4. ADEMPAS [Suspect]
     Active Substance: RIOCIGUAT
     Indication: PRODUCT USED FOR UNKNOWN INDICATION
     Dosage: 1 MG, TID
     Route: 065
  5. ADEMPAS [Suspect]
     Active Substance: RIOCIGUAT
     Dosage: 1 MG
     Route: 065
     Dates: start: 20190816
  6. ELIQUIS [Concomitant]
     Active Substance: APIXABAN
  7. REMODULIN [Suspect]
     Active Substance: TREPROSTINIL
     Indication: PRODUCT USED FOR UNKNOWN INDICATION
     Route: 065
  8. ADEMPAS [Suspect]
     Active Substance: RIOCIGUAT
     Dosage: 0.5 MG
     Route: 065

REACTIONS (22)
  - Headache [Unknown]
  - Thrombosis [Unknown]
  - Dyspnoea [Unknown]
  - Cardiac failure congestive [Unknown]
  - Pain in jaw [Unknown]
  - Weight increased [Unknown]
  - Device related thrombosis [Unknown]
  - Constipation [Unknown]
  - Condition aggravated [Unknown]
  - Pyrexia [Unknown]
  - Therapy change [Unknown]
  - Ascites [Unknown]
  - Anaemia [Unknown]
  - Sepsis [Unknown]
  - Myalgia [Unknown]
  - Pulmonary hypertension [Unknown]
  - Neck pain [Unknown]
  - Oedema [Unknown]
  - Musculoskeletal pain [Unknown]
  - Nausea [Unknown]
  - Vomiting [Unknown]
  - Pain [Unknown]
